FAERS Safety Report 7823370-0 (Version None)
Quarter: 2011Q4

REPORT INFORMATION
  Report Type: 
  Country: None (occurrence: None)
  Receive Date: 20111014
  Receipt Date: 20111005
  Transmission Date: 20120403
  Serious: Yes (Other)
  Sender: FDA-Public Use
  Company Number: 124576

PATIENT
  Age: 3 Year
  Sex: Male

DRUGS (2)
  1. METHOTREXATE [Suspect]
     Dosage: 25MG/IV/EVERY WEEK JULY 2011 OR AUGUST 2011 TO PRESENT
  2. METHOTREXATE [Suspect]
     Dosage: 25MG/IV/EVERY WEEK JULY 2011 OR AUGUST 2011 TO PRESENT
     Route: 042

REACTIONS (2)
  - MEDICATION ERROR [None]
  - INCORRECT DOSE ADMINISTERED [None]
